FAERS Safety Report 7428592-9 (Version None)
Quarter: 2011Q2

REPORT INFORMATION
  Report Type: 
  Country: None (occurrence: None)
  Receive Date: 20110421
  Receipt Date: 20101021
  Transmission Date: 20111010
  Serious: Yes (Hospitalization)
  Sender: FDA-Public Use
  Company Number: US-BAYER-201015992NA

PATIENT
  Age: 50 Year
  Sex: Female
  Weight: 70.909 kg

DRUGS (6)
  1. YAZ [Suspect]
     Indication: ORAL CONTRACEPTION
     Route: 048
     Dates: start: 20070520, end: 20080423
  2. ZYRTEC [Concomitant]
     Indication: HYPERSENSITIVITY
     Route: 048
     Dates: start: 20000101, end: 20100101
  3. ASCORBIC ACID [Concomitant]
     Dosage: DAILY
  4. MULTI-VITAMIN [Concomitant]
     Dosage: DAILY
  5. PRILOSEC [Concomitant]
     Indication: GASTROOESOPHAGEAL REFLUX DISEASE
     Dates: start: 20000101, end: 20100101
  6. YAZ [Suspect]
     Indication: PROPHYLAXIS

REACTIONS (3)
  - PAIN IN EXTREMITY [None]
  - OEDEMA PERIPHERAL [None]
  - DEEP VEIN THROMBOSIS [None]
